FAERS Safety Report 11805768 (Version 1)
Quarter: 2015Q4

REPORT INFORMATION
  Report Type: Spontaneous
  Country: US (occurrence: None)
  Receive Date: 20151204
  Receipt Date: 20151204
  Transmission Date: 20160305
  Serious: No
  Sender: FDA-Public Use
  Company Number: None

PATIENT
  Age: 56 Year
  Sex: Female
  Weight: 72.12 kg

DRUGS (8)
  1. VITAMIN B [Concomitant]
     Active Substance: VITAMIN B
  2. CALCIUM [Concomitant]
     Active Substance: CALCIUM
  3. MULTIVITAMIN [Concomitant]
     Active Substance: VITAMINS
  4. IBANDRONATE SODIUM TABLETS [Suspect]
     Active Substance: IBANDRONATE SODIUM
     Indication: OSTEOPOROSIS
     Dosage: 1 PILL
     Route: 048
     Dates: start: 20151201, end: 20151201
  5. VITAMIN D [Concomitant]
     Active Substance: CHOLECALCIFEROL
  6. FIBER [Concomitant]
     Active Substance: PSYLLIUM HUSK
  7. IBUPROFEN. [Concomitant]
     Active Substance: IBUPROFEN
  8. VITAMIN B12 [Concomitant]
     Active Substance: CYANOCOBALAMIN

REACTIONS (10)
  - Pain in jaw [None]
  - Myalgia [None]
  - Paraesthesia [None]
  - Diarrhoea [None]
  - Urticaria [None]
  - Chills [None]
  - Neck pain [None]
  - Paraesthesia oral [None]
  - Hypoaesthesia [None]
  - Back pain [None]

NARRATIVE: CASE EVENT DATE: 20151202
